FAERS Safety Report 21065364 (Version 5)
Quarter: 2022Q3

REPORT INFORMATION
  Report Type: Spontaneous
  Country: CN (occurrence: None)
  Receive Date: 20220711
  Receipt Date: 20220727
  Transmission Date: 20221026
  Serious: Yes (Hospitalization, Other)
  Sender: FDA-Public Use
  Company Number: 2022A245048

PATIENT
  Age: 60 Year
  Sex: Male
  Weight: 56 kg

DRUGS (3)
  1. IMFINZI [Suspect]
     Active Substance: DURVALUMAB
     Indication: Non-small cell lung cancer stage III
     Dosage: 500 MG/10 ML, 120 MG/2.4 ML, 620MG/CYCLE
     Route: 042
     Dates: start: 20220208, end: 20220302
  2. IMFINZI [Suspect]
     Active Substance: DURVALUMAB
     Indication: Non-small cell lung cancer stage III
     Dosage: 500 MG/10 ML, 120 MG/2.4 ML
     Route: 042
     Dates: end: 20220413
  3. BEVACIZUMAB [Concomitant]
     Active Substance: BEVACIZUMAB

REACTIONS (8)
  - Myocardial ischaemia [Recovering/Resolving]
  - Myelosuppression [Recovering/Resolving]
  - Heart rate decreased [Recovering/Resolving]
  - Cortisol decreased [Recovering/Resolving]
  - Marasmus [Recovering/Resolving]
  - Decreased appetite [Recovering/Resolving]
  - Platelet count decreased [Recovering/Resolving]
  - White blood cell count decreased [Recovering/Resolving]
